FAERS Safety Report 8690203 (Version 3)
Quarter: 2012Q4

REPORT INFORMATION
  Report Type: 
  Country: US (occurrence: US)
  Receive Date: 20120727
  Receipt Date: 20121116
  Transmission Date: 20130627
  Serious: Yes (Life-Threatening, Hospitalization, Other)
  Sender: FDA-Public Use
  Company Number: US-ASTRAZENECA-2010SE09915

PATIENT
  Age: 59 Year
  Sex: Female

DRUGS (4)
  1. TOPROL XL [Suspect]
     Dosage: 200 mg, daily
     Route: 048
  2. MORPHINE [Suspect]
     Route: 065
  3. DIOVAN [Concomitant]
  4. EFFEXOR [Concomitant]

REACTIONS (11)
  - Accidental overdose [Unknown]
  - Apparent death [Unknown]
  - Limb crushing injury [Unknown]
  - Limb crushing injury [Unknown]
  - Accident [Unknown]
  - Drug hypersensitivity [Unknown]
  - Fall [Unknown]
  - Femur fracture [Unknown]
  - Upper limb fracture [Unknown]
  - Dizziness [Unknown]
  - Blood pressure decreased [Unknown]
